FAERS Safety Report 17271046 (Version 1)
Quarter: 2020Q1

REPORT INFORMATION
  Report Type: Spontaneous
  Country: US (occurrence: US)
  Receive Date: 20200115
  Receipt Date: 20200115
  Transmission Date: 20200409
  Serious: No
  Sender: FDA-Public Use
  Company Number: US-CIPLA LTD.-2019US07219

PATIENT

DRUGS (3)
  1. ALBENDAZOLE. [Suspect]
     Active Substance: ALBENDAZOLE
     Indication: HOOKWORM INFECTION
     Dosage: 400 MILLIGRAM (2 TABLETS)
     Route: 065
     Dates: start: 201902
  2. ALBENDAZOLE. [Suspect]
     Active Substance: ALBENDAZOLE
     Dosage: 400 MILLIGRAM (2 TABLETS)
     Route: 065
     Dates: start: 201903
  3. ALBENDAZOLE. [Suspect]
     Active Substance: ALBENDAZOLE
     Dosage: UNK
     Route: 065
     Dates: start: 201904

REACTIONS (1)
  - Drug ineffective [Unknown]
